FAERS Safety Report 7429086 (Version 2)
Quarter: 2020Q2

REPORT INFORMATION
  Report Type: Spontaneous
  Country: PT (occurrence: PT)
  Receive Date: 20100623
  Receipt Date: 20200617
  Transmission Date: 20200714
  Serious: Yes (Death, Life-Threatening, Other)
  Sender: FDA-Public Use
  Company Number: GXKR2010PT06592

PATIENT
  Age: 57 Year
  Sex: Female

DRUGS (8)
  1. TRASTUZUMAB. [Suspect]
     Active Substance: TRASTUZUMAB
     Indication: INVASIVE DUCTAL BREAST CARCINOMA
  2. TAMOXIFEN [Concomitant]
     Active Substance: TAMOXIFEN
     Indication: CHEMOTHERAPY
     Dosage: UNK
     Route: 065
     Dates: start: 200809
  3. PERINDOPRIL [Suspect]
     Active Substance: PERINDOPRIL
     Indication: PRODUCT USED FOR UNKNOWN INDICATION
     Dosage: 5 MG, QD
     Route: 065
     Dates: start: 200903
  4. TIANEPTINE [Suspect]
     Active Substance: TIANEPTINE
     Indication: DEPRESSION
     Route: 065
  5. ESTAZOLAM. [Suspect]
     Active Substance: ESTAZOLAM
     Indication: DEPRESSION
     Route: 065
  6. TRASTUZUMAB. [Suspect]
     Active Substance: TRASTUZUMAB
     Indication: CHEMOTHERAPY
     Dosage: UNKNOWN
     Route: 041
     Dates: start: 200810, end: 20090309
  7. ATENOLOL. [Suspect]
     Active Substance: ATENOLOL
     Indication: SUPRAVENTRICULAR EXTRASYSTOLES
     Dosage: UNK
     Route: 065
     Dates: end: 200903
  8. DIAZEPAM. [Suspect]
     Active Substance: DIAZEPAM
     Indication: DEPRESSION
     Route: 065

REACTIONS (4)
  - Arrhythmia [Fatal]
  - Drug interaction [Fatal]
  - Sudden cardiac death [Fatal]
  - Cardiac death [Fatal]

NARRATIVE: CASE EVENT DATE: 200903
